FAERS Safety Report 5148164-9 (Version None)
Quarter: 2006Q4

REPORT INFORMATION
  Report Type: 
  Country: None (occurrence: None)
  Receive Date: 20061110
  Receipt Date: 20060130
  Transmission Date: 20070319
  Serious: Yes (Hospitalization, Other)
  Sender: FDA-Public Use
  Company Number: US-ELI_LILLY_AND_COMPANY-US200601005336

PATIENT
  Age: 47 Year
  Sex: Female
  Weight: 96.598 kg

DRUGS (1)
  1. ZYPREXA [Suspect]
     Indication: ANXIETY
     Dosage: UNK, UNK
     Dates: start: 20010501

REACTIONS (6)
  - BENIGN OVARIAN TUMOUR [None]
  - DIABETES MELLITUS NON-INSULIN-DEPENDENT [None]
  - IMPAIRED HEALING [None]
  - LOSS OF CONSCIOUSNESS [None]
  - VISION BLURRED [None]
  - WEIGHT INCREASED [None]
